FAERS Safety Report 6412416-2 (Version None)
Quarter: 2009Q4

REPORT INFORMATION
  Report Type: 
  Country: None (occurrence: None)
  Receive Date: 20091023
  Receipt Date: 20091015
  Transmission Date: 20100525
  Serious: Yes (Hospitalization, Other)
  Sender: FDA-Public Use
  Company Number: BR-ABBOTT-09P-020-0603142-00

PATIENT
  Sex: Female
  Weight: 59 kg

DRUGS (14)
  1. HUMIRA [Suspect]
     Indication: RHEUMATOID ARTHRITIS
     Route: 058
     Dates: end: 20090725
  2. HUMIRA [Suspect]
  3. MAREVAN [Concomitant]
     Indication: ANTICOAGULANT THERAPY
     Dosage: 3/4 DAILY
     Route: 048
  4. CLOPIDOGREL [Concomitant]
     Indication: ANTICOAGULANT THERAPY
     Route: 048
  5. SIMVASTATIN [Concomitant]
     Indication: BLOOD CHOLESTEROL ABNORMAL
     Route: 048
  6. SELO-ZOK [Concomitant]
     Indication: HYPERTENSION
     Route: 048
  7. LOSARTAN [Concomitant]
     Indication: BLOOD PRESSURE
     Route: 048
  8. AAS [Concomitant]
     Indication: ANTICOAGULANT THERAPY
     Route: 048
  9. PRELONE [Concomitant]
     Indication: RHEUMATOID ARTHRITIS
     Dosage: 1/2 TABLET PER DAY
     Route: 048
  10. METHOTREXATE [Concomitant]
     Indication: RHEUMATOID ARTHRITIS
     Route: 058
  11. FOLIC ACID [Concomitant]
     Indication: ANAEMIA
     Route: 048
  12. FOLIC ACID [Concomitant]
     Indication: LIVER DISORDER
  13. CALCIUM CARBONATE, VITAMIN D (NUTRICAL D) [Concomitant]
     Indication: MINERAL SUPPLEMENTATION
     Route: 048
  14. PANTOPRAZOLE SODIUM [Concomitant]
     Indication: GASTRIC DISORDER
     Route: 048

REACTIONS (2)
  - CORONARY ARTERY EMBOLISM [None]
  - INFARCTION [None]
